FAERS Safety Report 5858060-7 (Version None)
Quarter: 2008Q3

REPORT INFORMATION
  Report Type: 
  Country: None (occurrence: None)
  Receive Date: 20080826
  Receipt Date: 20080819
  Transmission Date: 20090109
  Serious: Yes (Death, Hospitalization)
  Sender: FDA-Public Use
  Company Number: US-CELGENEUS-163-21880-08041370

PATIENT
  Sex: Female

DRUGS (8)
  1. REVLIMID [Suspect]
     Indication: MYELODYSPLASTIC SYNDROME
     Route: 048
     Dates: start: 20071201, end: 20080201
  2. REVLIMID [Suspect]
     Route: 048
     Dates: start: 20080222, end: 20080320
  3. LEVAQUIN [Concomitant]
     Indication: DRUG USE FOR UNKNOWN INDICATION
  4. AMBIEN CR [Concomitant]
     Indication: INSOMNIA
     Route: 065
     Dates: start: 20071008, end: 20080418
  5. REGULAR INSULIN [Concomitant]
     Indication: TYPE 2 DIABETES MELLITUS
     Dosage: SLIDING SCALE
     Route: 065
     Dates: start: 20080321, end: 20080101
  6. DIFLUCAN [Concomitant]
     Indication: DRUG USE FOR UNKNOWN INDICATION
     Route: 048
  7. ZOVIRAX [Concomitant]
     Indication: DRUG USE FOR UNKNOWN INDICATION
     Route: 051
     Dates: start: 20080321, end: 20080326
  8. ZOLOFT [Concomitant]
     Indication: DEPRESSION
     Route: 065

REACTIONS (9)
  - ASTHENIA [None]
  - DYSPHAGIA [None]
  - HYPOXIA [None]
  - LUNG INFILTRATION [None]
  - NAUSEA [None]
  - NEOPLASM PROGRESSION [None]
  - OESOPHAGITIS [None]
  - PYREXIA [None]
  - RESPIRATORY FAILURE [None]
